FAERS Safety Report 22160949 (Version 1)
Quarter: 2023Q1

REPORT INFORMATION
  Report Type: Spontaneous
  Country: US (occurrence: None)
  Receive Date: 20230330
  Receipt Date: 20230330
  Transmission Date: 20230417
  Serious: No
  Sender: FDA-Public Use
  Company Number: None

PATIENT
  Age: 45 Year
  Sex: Female

DRUGS (1)
  1. OPZELURA [Suspect]
     Active Substance: RUXOLITINIB PHOSPHATE
     Indication: Lichen planus
     Dosage: FREQUENCY : TWICE A DAY;?
     Route: 061
     Dates: start: 202302

REACTIONS (1)
  - Lichen planus [None]

NARRATIVE: CASE EVENT DATE: 20230228
